FAERS Safety Report 14629693 (Version 2)
Quarter: 2018Q4

REPORT INFORMATION
  Report Type: Spontaneous
  Country: JP (occurrence: JP)
  Receive Date: 20180313
  Receipt Date: 20181107
  Transmission Date: 20190204
  Serious: Yes (Hospitalization, Other)
  Sender: FDA-Public Use
  Company Number: JP-AMGEN-JPNSP2018033304

PATIENT
  Age: 64 Year
  Sex: Female
  Weight: 45 kg

DRUGS (8)
  1. ZOMETA [Suspect]
     Active Substance: ZOLEDRONIC ACID
     Indication: PRODUCT USED FOR UNKNOWN INDICATION
     Dosage: UNK
     Route: 065
  2. TAXOL [Concomitant]
     Active Substance: PACLITAXEL
     Dosage: UNK
     Route: 042
  3. FEMARA [Concomitant]
     Active Substance: LETROZOLE
     Indication: METASTASES TO LIVER
     Dosage: UNK
     Route: 048
     Dates: start: 20101207, end: 20120403
  4. AROMASIN [Concomitant]
     Active Substance: EXEMESTANE
     Indication: METASTASES TO BONE
     Dosage: UNK
     Route: 048
     Dates: start: 20120404, end: 20120509
  5. RANMARK [Suspect]
     Active Substance: DENOSUMAB
     Indication: METASTASES TO BONE
     Dosage: 120 MG, UNK
     Route: 065
     Dates: start: 20141203, end: 20160603
  6. ARIMIDEX [Concomitant]
     Active Substance: ANASTROZOLE
     Dosage: UNK
     Route: 048
  7. ARIMIDEX [Concomitant]
     Active Substance: ANASTROZOLE
     Dosage: 1 MG, QD
     Route: 048
     Dates: start: 20180725
  8. AROMASIN [Concomitant]
     Active Substance: EXEMESTANE
     Indication: METASTASES TO LIVER

REACTIONS (1)
  - Osteonecrosis of jaw [Not Recovered/Not Resolved]

NARRATIVE: CASE EVENT DATE: 20150305
